FAERS Safety Report 16257062 (Version 1)
Quarter: 2019Q2

REPORT INFORMATION
  Report Type: Spontaneous
  Country: US (occurrence: US)
  Receive Date: 20190327
  Receipt Date: 20190327
  Transmission Date: 20190711
  Serious: No
  Sender: FDA-Public Use
  Company Number: None

PATIENT
  Age: 84 Year
  Sex: Female
  Weight: 68.04 kg

DRUGS (9)
  1. VIT/MINERAL SUPPLEMENTS [Concomitant]
  2. VITAMIN E [Concomitant]
     Active Substance: .ALPHA.-TOCOPHEROL
  3. VIT D [Concomitant]
     Active Substance: VITAMIN D NOS
  4. GLUCOSAMINE/CHONDROTIN [Concomitant]
     Active Substance: CHONDROITIN SULFATE (BOVINE)\GLUCOSAMINE SULFATE
  5. ASPIRIN. [Concomitant]
     Active Substance: ASPIRIN
  6. VIT A [Concomitant]
  7. VITAMIN C [Concomitant]
     Active Substance: ASCORBIC ACID
  8. MEMANTINE HCL [Suspect]
     Active Substance: MEMANTINE
     Indication: DEMENTIA
     Dosage: ?          QUANTITY:5 MG MILLIGRAM(S);?
     Route: 048
     Dates: start: 20190304, end: 20190313
  9. VIT B [Concomitant]
     Active Substance: VITAMIN B

REACTIONS (3)
  - Erythema [None]
  - Rash [None]
  - Acne [None]
